FAERS Safety Report 7212601-6 (Version None)
Quarter: 2011Q1

REPORT INFORMATION
  Report Type: 
  Country: None (occurrence: None)
  Receive Date: 20110106
  Receipt Date: 20101229
  Transmission Date: 20110831
  Serious: Yes (Hospitalization, Other)
  Sender: FDA-Public Use
  Company Number: US-AMGEN-USASP2010001337

PATIENT

DRUGS (9)
  1. ENBREL [Suspect]
     Indication: RHEUMATOID ARTHRITIS
     Dosage: 50 MG, QWK
     Route: 058
     Dates: start: 20070604, end: 20101013
  2. METHOTREXATE [Concomitant]
  3. FISH OIL [Concomitant]
  4. NAPROSYN [Concomitant]
     Dosage: 500 MG, BID
  5. AZULFIDINE [Concomitant]
     Dosage: 500 MG, QID
  6. ENBREL [Suspect]
     Indication: PSORIATIC ARTHROPATHY
     Dates: start: 20070501, end: 20100901
  7. NABUMETONE [Concomitant]
  8. ALEVE [Concomitant]
  9. VITAMIN C                          /00008001/ [Concomitant]
     Dosage: 100 MG, QD
     Route: 048

REACTIONS (8)
  - RASH [None]
  - LYMPHADENOPATHY [None]
  - PNEUMONIA [None]
  - FUNGAL SKIN INFECTION [None]
  - DYSPNOEA [None]
  - CHEST DISCOMFORT [None]
  - DISORIENTATION [None]
  - HAEMATURIA [None]
